FAERS Safety Report 8888828 (Version 5)
Quarter: 2013Q1

REPORT INFORMATION
  Report Type: Spontaneous
  Country: JP (occurrence: JP)
  Receive Date: 20121106
  Receipt Date: 20130129
  Transmission Date: 20140127
  Serious: Yes (Life-Threatening)
  Sender: FDA-Public Use
  Company Number: JP-TEVA-366847ISR

PATIENT
  Age: 59 Year
  Sex: Female
  Weight: 41.2 kg

DRUGS (11)
  1. CEFAZOLIN NA, INJ, 1G [Suspect]
     Indication: PREOPERATIVE CARE
     Dosage: 1 GRAM DAILY;
     Route: 041
     Dates: start: 20121025, end: 20121025
  2. MYSLEE TABLETS 5MG [Concomitant]
     Indication: INSOMNIA
     Dosage: 5 MILLIGRAM DAILY;
     Route: 048
  3. REBAMIPIDE, 200MG [Concomitant]
     Indication: GASTRITIS
     Dosage: 300 MILLIGRAM DAILY;
     Route: 048
  4. RENAGEL,250MG [Concomitant]
     Indication: HYPERPHOSPHATAEMIA
     Dosage: 750 MILLIGRAM DAILY;
     Route: 048
  5. FOSRENOL GRANULES 250MG [Concomitant]
     Indication: HYPERPHOSPHATAEMIA
     Dosage: 750 MILLIGRAM DAILY;
     Route: 048
  6. PARIET,TAB,10MG [Concomitant]
     Indication: GASTROOESOPHAGEAL REFLUX DISEASE
     Dosage: 10 MILLIGRAM DAILY;
  7. REGPARA TABLETS [Concomitant]
     Indication: HYPERPARATHYROIDISM
     Dosage: 12.5 MILLIGRAM DAILY;
     Route: 048
  8. OXAROL,INJ,5MCG [Concomitant]
     Indication: HYPERPARATHYROIDISM
     Route: 042
  9. MIRCERA,75MCG [Concomitant]
     Indication: NEPHROGENIC ANAEMIA
     Route: 042
  10. PREDNISOLONE [Concomitant]
     Indication: TOXIC SKIN ERUPTION
     Dosage: 5 MILLIGRAM DAILY;
     Route: 048
     Dates: start: 20120829
  11. PREDNISOLONE [Concomitant]
     Dosage: 7.5 MILLIGRAM DAILY;
     Route: 048
     Dates: start: 20120828, end: 20120828

REACTIONS (1)
  - Anaphylactic shock [Recovered/Resolved]
